FAERS Safety Report 4533424-2 (Version None)
Quarter: 2004Q4

REPORT INFORMATION
  Report Type: 
  Country: None (occurrence: None)
  Receive Date: 20041210
  Receipt Date: 20041025
  Transmission Date: 20050328
  Serious: Yes (Other)
  Sender: FDA-Public Use
  Company Number: 2004-00630

PATIENT
  Age: 73 Year
  Sex: Female
  Weight: 63.9 kg

DRUGS (6)
  1. VELCADE [Suspect]
     Indication: MULTIPLE MYELOMA
     Dosage: 2.20MG, IV BOLUS
     Route: 040
     Dates: start: 20040308, end: 20041012
  2. DECADRON [Concomitant]
  3. PAMIDRONATE DISODIUM [Concomitant]
  4. PROCRIT (ERYTHROPOIETIN) [Concomitant]
  5. LEUKINE [Concomitant]
  6. GLUCOPHAGE [Concomitant]

REACTIONS (3)
  - DIZZINESS [None]
  - HEADACHE [None]
  - VITH NERVE PARALYSIS [None]
